FAERS Safety Report 11268917 (Version 2)
Quarter: 2015Q3

REPORT INFORMATION
  Report Type: Spontaneous
  Country: JP (occurrence: JP)
  Receive Date: 20150714
  Receipt Date: 20150818
  Transmission Date: 20151125
  Serious: Yes (Hospitalization, Other)
  Sender: FDA-Public Use
  Company Number: JP-PFIZER INC-2015144930

PATIENT
  Age: 78 Year
  Sex: Male
  Weight: 56 kg

DRUGS (5)
  1. ONEALFA [Concomitant]
     Active Substance: ALFACALCIDOL
     Indication: OSTEOPOROSIS
     Dosage: 0.5 MG, 1X/DAY
     Route: 048
     Dates: start: 20140501
  2. BONALON [Suspect]
     Active Substance: ALENDRONATE SODIUM
     Indication: OSTEOPOROSIS
     Dosage: 35 MG, WEEKLY
     Route: 048
     Dates: start: 20131015, end: 20141008
  3. REBAMIPIDE [Concomitant]
     Active Substance: REBAMIPIDE
     Indication: PROPHYLAXIS AGAINST GASTROINTESTINAL ULCER
     Dosage: 100 MG, 3X/DAY
     Route: 048
     Dates: start: 20131022
  4. XARELTO [Suspect]
     Active Substance: RIVAROXABAN
     Indication: ATRIAL FIBRILLATION
     Dosage: 10 MG, 1X/DAY
     Route: 048
     Dates: start: 20130624, end: 20140619
  5. CELECOX [Suspect]
     Active Substance: CELECOXIB
     Indication: LUMBAR VERTEBRAL FRACTURE
     Dosage: 100 MG, 2X/DAY
     Route: 048
     Dates: start: 20131022, end: 20140619

REACTIONS (7)
  - Diverticulitis intestinal haemorrhagic [Unknown]
  - Dizziness [Unknown]
  - Small intestine ulcer [Recovering/Resolving]
  - Diverticulum intestinal [Unknown]
  - Gastrointestinal erosion [Not Recovered/Not Resolved]
  - Duodenal stenosis [Recovering/Resolving]
  - Haematochezia [Unknown]

NARRATIVE: CASE EVENT DATE: 20140619
